FAERS Safety Report 6138757-4 (Version None)
Quarter: 2009Q1

REPORT INFORMATION
  Report Type: 
  Country: None (occurrence: None)
  Receive Date: 20090331
  Receipt Date: 20090318
  Transmission Date: 20090719
  Serious: Yes (Other)
  Sender: FDA-Public Use
  Company Number: CA-ROCHE-622890

PATIENT
  Sex: Male

DRUGS (4)
  1. CAPECITABINE [Suspect]
     Route: 042
  2. OXALIPLATIN [Suspect]
     Route: 042
  3. IRINOTECAN HCL [Suspect]
     Route: 042
  4. FOLFIRI [Suspect]
     Indication: DRUG USE FOR UNKNOWN INDICATION
     Route: 065

REACTIONS (4)
  - DISEASE PROGRESSION [None]
  - NEUROPATHY PERIPHERAL [None]
  - PALMAR-PLANTAR ERYTHRODYSAESTHESIA SYNDROME [None]
  - THROMBOCYTOPENIA [None]
